FAERS Safety Report 18966340 (Version 1)
Quarter: 2021Q1

REPORT INFORMATION
  Report Type: Spontaneous
  Country: BR (occurrence: BR)
  Receive Date: 20210304
  Receipt Date: 20210304
  Transmission Date: 20210420
  Serious: Yes (Hospitalization, Other)
  Sender: FDA-Public Use
  Company Number: BR-AUROBINDO-AUR-APL-2021-009066

PATIENT
  Age: 39 Year
  Sex: Female

DRUGS (1)
  1. SERTRALINE [Suspect]
     Active Substance: SERTRALINE HYDROCHLORIDE
     Indication: PRODUCT USED FOR UNKNOWN INDICATION
     Dosage: UNK
     Route: 065

REACTIONS (11)
  - Rash erythematous [Recovering/Resolving]
  - Epidermal necrosis [Recovering/Resolving]
  - Lip erosion [Recovering/Resolving]
  - Urinary retention [Unknown]
  - Rash pruritic [Recovering/Resolving]
  - Photophobia [Unknown]
  - Blister [Recovering/Resolving]
  - Rash pustular [Recovering/Resolving]
  - Tachycardia [Unknown]
  - Dysphagia [Recovering/Resolving]
  - Toxic epidermal necrolysis [Recovering/Resolving]
